FAERS Safety Report 8509712-1 (Version None)
Quarter: 2012Q3

REPORT INFORMATION
  Report Type: 
  Country: None (occurrence: None)
  Receive Date: 20120713
  Receipt Date: 20120709
  Transmission Date: 20120928
  Serious: Yes (Other)
  Sender: FDA-Public Use
  Company Number: US-ABBOTT-12P-163-0936812-00

PATIENT
  Sex: Male

DRUGS (10)
  1. HUMIRA [Suspect]
     Indication: RHEUMATOID ARTHRITIS
     Dosage: LOADING DOSE
     Dates: start: 20120503, end: 20120503
  2. HUMIRA [Suspect]
     Indication: PSORIATIC ARTHROPATHY
     Dates: start: 20120518
  3. LEPSIN [Concomitant]
     Indication: COLITIS
  4. ANTI GAS MEDICATION [Concomitant]
     Indication: COLITIS
  5. HUMALOG [Concomitant]
     Indication: DIABETES MELLITUS
     Dosage: SLIDING SCALE THE REMAINDER OF THE DAY
  6. LIALDA [Concomitant]
     Indication: COLITIS
  7. HUMIRA [Suspect]
     Indication: COLITIS
  8. HUMIRA [Suspect]
     Indication: PSORIATIC ARTHROPATHY
  9. LANTUS [Concomitant]
     Indication: DIABETES MELLITUS
     Dosage: IN MORNING
  10. HUMIRA [Suspect]
     Indication: RHEUMATOID ARTHRITIS
     Dates: start: 20080710

REACTIONS (3)
  - PSORIASIS [None]
  - CORONARY ARTERY OCCLUSION [None]
  - HAEMORRHAGE [None]
